FAERS Safety Report 6251643-4 (Version None)
Quarter: 2009Q2

REPORT INFORMATION
  Report Type: 
  Country: None (occurrence: None)
  Receive Date: 20090630
  Receipt Date: 20090618
  Transmission Date: 20091009
  Serious: Yes (Hospitalization)
  Sender: FDA-Public Use
  Company Number: US-PFIZER INC-2009158535

PATIENT
  Sex: Female
  Weight: 39.002 kg

DRUGS (18)
  1. BLINDED *NO SUBJECT DRUG [Suspect]
     Indication: LUNG NEOPLASM MALIGNANT
     Dosage: 37.5 MG, 1X/DAY
     Route: 048
     Dates: start: 20080729
  2. BLINDED *PLACEBO [Suspect]
     Indication: LUNG NEOPLASM MALIGNANT
     Dosage: 37.5 MG, 1X/DAY
     Route: 048
     Dates: start: 20080729
  3. BLINDED SUNITINIB MALATE [Suspect]
     Indication: LUNG NEOPLASM MALIGNANT
     Dosage: 37.5 MG, 1X/DAY
     Route: 048
     Dates: start: 20080729
  4. *ERLOTINIB [Suspect]
     Indication: LUNG NEOPLASM MALIGNANT
     Dosage: 150 MG, 1X/DAY
     Route: 048
     Dates: start: 20080729
  5. LOPERAMIDE HYDROCHLORIDE [Concomitant]
     Dosage: UNK
     Route: 048
     Dates: start: 20080811
  6. MAGIC MOUTHWASH [Concomitant]
     Dosage: UNK
     Route: 048
     Dates: start: 20080812
  7. MEGACE [Concomitant]
     Dosage: UNK
     Route: 048
     Dates: start: 20080827
  8. NEUTRA-PHOS [Concomitant]
     Dosage: UNK
     Route: 048
     Dates: start: 20080827
  9. VYTORIN [Concomitant]
     Dosage: UNK
     Route: 048
     Dates: start: 20030101
  10. ASPIRIN [Concomitant]
     Dosage: UNK
     Route: 048
     Dates: start: 20030101
  11. LISINOPRIL [Concomitant]
     Dosage: UNK
     Route: 048
     Dates: start: 20030101
  12. PLAVIX [Concomitant]
     Dosage: UNK
     Route: 048
     Dates: start: 20030101
  13. CITALOPRAM [Concomitant]
     Dosage: UNK
     Route: 048
     Dates: start: 20030101
  14. PROCHLORPERAZINE [Concomitant]
     Dosage: UNK
     Route: 048
     Dates: start: 20080930
  15. MAGNESIUM OXIDE [Concomitant]
     Dosage: UNK
     Route: 048
     Dates: start: 20081020
  16. AMBIEN [Concomitant]
     Dosage: UNK
     Route: 048
     Dates: start: 20081216
  17. LEVAQUIN [Concomitant]
     Dosage: UNK
     Route: 048
     Dates: start: 20090114
  18. POTASSIUM CHLORIDE [Concomitant]
     Dosage: UNK
     Route: 048
     Dates: start: 20090114

REACTIONS (1)
  - MYOCARDIAL INFARCTION [None]
